FAERS Safety Report 9065065 (Version 2)
Quarter: 2013Q1

REPORT INFORMATION
  Report Type: Spontaneous
  Country: US (occurrence: US)
  Receive Date: 20130128
  Receipt Date: 20130222
  Transmission Date: 20140127
  Serious: Yes (Death)
  Sender: FDA-Public Use
  Company Number: US-JNJFOC-20130108341

PATIENT
  Age: 6 Year
  Sex: Female

DRUGS (4)
  1. ZYRTEC [Suspect]
     Route: 065
  2. ZYRTEC [Suspect]
     Indication: INFLUENZA
     Route: 065
  3. TYLENOL [Suspect]
     Route: 065
  4. TYLENOL [Suspect]
     Indication: INFLUENZA
     Route: 065

REACTIONS (1)
  - Influenza [Fatal]
